FAERS Safety Report 16457367 (Version 1)
Quarter: 2019Q2

REPORT INFORMATION
  Report Type: Spontaneous
  Country: CA (occurrence: CA)
  Receive Date: 20190620
  Receipt Date: 20190620
  Transmission Date: 20190711
  Serious: Yes (Other)
  Sender: FDA-Public Use
  Company Number: CA-TEVA-2019-CA-1065739

PATIENT
  Age: 61 Year
  Sex: Female
  Weight: 90 kg

DRUGS (11)
  1. ELIQUIS [Concomitant]
     Active Substance: APIXABAN
  2. PHENYTOIN. [Concomitant]
     Active Substance: PHENYTOIN
  3. DILTIAZEM. [Concomitant]
     Active Substance: DILTIAZEM
  4. PREDNISONE. [Concomitant]
     Active Substance: PREDNISONE
  5. TYLENOL WITH CODEINE [Concomitant]
     Active Substance: ACETAMINOPHEN\CODEINE PHOSPHATE
  6. GABAPENTIN. [Suspect]
     Active Substance: GABAPENTIN
     Indication: NEUROPATHY PERIPHERAL
     Route: 065
  7. CLOBAZAM. [Concomitant]
     Active Substance: CLOBAZAM
  8. VITAMIN D [Concomitant]
     Active Substance: VITAMIN D NOS
  9. ATORVASTATIN [Concomitant]
     Active Substance: ATORVASTATIN
  10. INHIBACE PLUS - TAB [Suspect]
     Active Substance: CILAZAPRIL ANHYDROUS\HYDROCHLOROTHIAZIDE
     Indication: HYPERTENSION
     Route: 048
  11. METFORMIN [Concomitant]
     Active Substance: METFORMIN HYDROCHLORIDE

REACTIONS (7)
  - Diabetes mellitus inadequate control [Recovering/Resolving]
  - Hyperglycaemia [Recovering/Resolving]
  - Hypoaesthesia [Recovering/Resolving]
  - Weight increased [Recovering/Resolving]
  - Gout [Recovering/Resolving]
  - Pain [Recovering/Resolving]
  - Hyperuricaemia [Recovering/Resolving]
